FAERS Safety Report 9163079 (Version 4)
Quarter: 2013Q3

REPORT INFORMATION
  Report Type: Report from Study
  Country: IL (occurrence: IL)
  Receive Date: 20130314
  Receipt Date: 20130911
  Transmission Date: 20140515
  Serious: Yes (Hospitalization, Other)
  Sender: FDA-Public Use
  Company Number: IL-CELGENEUS-082-21880-13030498

PATIENT
  Age: 85 Year
  Sex: Male

DRUGS (4)
  1. REVLIMID [Suspect]
     Indication: MYELODYSPLASTIC SYNDROME
     Route: 048
     Dates: start: 20120309, end: 20120811
  2. REVLIMID [Suspect]
     Route: 048
     Dates: start: 20130211, end: 20130425
  3. VIDAZA [Suspect]
     Indication: MYELODYSPLASTIC SYNDROME
     Route: 065
     Dates: start: 20120304, end: 20130116
  4. CILAZAPRIL [Concomitant]
     Indication: GASTRECTOMY
     Route: 065
     Dates: start: 20121025

REACTIONS (1)
  - Adenocarcinoma gastric [Not Recovered/Not Resolved]
